FAERS Safety Report 6655301-3 (Version None)
Quarter: 2010Q1

REPORT INFORMATION
  Report Type: 
  Country: None (occurrence: None)
  Receive Date: 20100329
  Receipt Date: 20100315
  Transmission Date: 20100710
  Serious: Yes (Hospitalization)
  Sender: FDA-Public Use
  Company Number: FR-SANOFI-AVENTIS-2010SA014529

PATIENT
  Age: 82 Year
  Sex: Female

DRUGS (12)
  1. KETOPROFEN [Interacting]
     Route: 030
     Dates: end: 20100108
  2. STILNOX [Suspect]
     Route: 048
     Dates: end: 20100108
  3. ACTISKENAN [Interacting]
     Route: 048
     Dates: end: 20100108
  4. DURAGESIC-100 [Interacting]
     Route: 061
     Dates: end: 20100108
  5. LEXOMIL [Interacting]
     Route: 048
     Dates: end: 20100108
  6. LAMALINE [Interacting]
     Dosage: DOSE:1 UNIT(S)
     Route: 048
     Dates: end: 20100108
  7. DEROXAT [Concomitant]
     Route: 048
  8. SINEMET [Concomitant]
     Route: 048
  9. REQUIP [Concomitant]
     Route: 048
  10. DILTIAZEM HCL [Concomitant]
     Route: 048
  11. LEVOTHYROX [Concomitant]
     Route: 048
  12. PARIET [Concomitant]
     Route: 048

REACTIONS (7)
  - CONFUSIONAL STATE [None]
  - CONSTIPATION [None]
  - DRUG INTERACTION [None]
  - DYSURIA [None]
  - MALAISE [None]
  - NIGHTMARE [None]
  - ORTHOSTATIC HYPOTENSION [None]
